FAERS Safety Report 5720595-5 (Version None)
Quarter: 2008Q2

REPORT INFORMATION
  Report Type: 
  Country: None (occurrence: None)
  Receive Date: 20080425
  Receipt Date: 20080425
  Transmission Date: 20081010
  Serious: No
  Sender: FDA-Public Use
  Company Number: None

PATIENT
  Age: 49 Year
  Sex: Female
  Weight: 85.2762 kg

DRUGS (1)
  1. TOBRADEX [Suspect]
     Indication: EYE LASER SURGERY
     Dosage: 1 DROP 4X PER DAY OPHTHALMIC
     Route: 047
     Dates: start: 20071013, end: 20071020

REACTIONS (2)
  - CATARACT [None]
  - POST PROCEDURAL COMPLICATION [None]
